FAERS Safety Report 10946423 (Version 2)
Quarter: 2015Q2

REPORT INFORMATION
  Report Type: Spontaneous
  Country: US (occurrence: US)
  Receive Date: 20150323
  Receipt Date: 20150413
  Transmission Date: 20150821
  Serious: Yes (Other)
  Sender: FDA-Public Use
  Company Number: US-BAYER-2015-060428

PATIENT
  Age: 61 Year
  Sex: Female
  Weight: 95.24 kg

DRUGS (1)
  1. ALEVE [Suspect]
     Active Substance: NAPROXEN SODIUM
     Indication: ANALGESIC THERAPY
     Dosage: 2 DF, BID
     Route: 048
     Dates: end: 201502

REACTIONS (5)
  - Incorrect drug administration duration [Unknown]
  - Gastric ulcer [Recovered/Resolved]
  - Extra dose administered [Unknown]
  - Drug intolerance [Not Recovered/Not Resolved]
  - Abdominal discomfort [Recovered/Resolved]
